FAERS Safety Report 15012205 (Version 1)
Quarter: 2018Q2

REPORT INFORMATION
  Report Type: Spontaneous
  Country: US (occurrence: US)
  Receive Date: 20180529
  Receipt Date: 20180529
  Transmission Date: 20180711
  Serious: Yes (Disabling, Other)
  Sender: FDA-Public Use
  Company Number: None

PATIENT
  Age: 77 Year
  Sex: Female
  Weight: 74.25 kg

DRUGS (9)
  1. GABAPENTIN. [Suspect]
     Active Substance: GABAPENTIN
     Indication: DEPRESSION
     Dosage: ?          QUANTITY:2 CAPSULE(S);OTHER ROUTE:MOUTH?
     Dates: start: 20170623
  2. LEVOTHYROXIN [Concomitant]
     Active Substance: LEVOTHYROXINE
  3. AMBIEN [Concomitant]
     Active Substance: ZOLPIDEM TARTRATE
  4. VITAMIN D [Concomitant]
     Active Substance: CHOLECALCIFEROL
  5. IBP [Concomitant]
     Active Substance: IBUPROFEN
  6. GABAPENTIN (PHARMACA NOVATO) [Suspect]
     Active Substance: GABAPENTIN
     Indication: DEPRESSION
     Dosage: ?          QUANTITY:2 CAPSULE(S);OTHER ROUTE:MOUTH?
     Dates: start: 20141017
  7. BYSTALIC [Concomitant]
  8. DAILY VITAMIN [Concomitant]
     Active Substance: VITAMINS
  9. LIDOCAINE PATCHES [Concomitant]
     Active Substance: LIDOCAINE

REACTIONS (4)
  - Dizziness [None]
  - Product substitution issue [None]
  - Depression [None]
  - Asthenia [None]
